FAERS Safety Report 5793843-3 (Version None)
Quarter: 2008Q2

REPORT INFORMATION
  Report Type: 
  Country: None (occurrence: None)
  Receive Date: 20080627
  Receipt Date: 20080610
  Transmission Date: 20081010
  Serious: No
  Sender: FDA-Public Use
  Company Number: US-BOEHRINGER INGELHEIM GMBH, GERMANY-2008-BP-06499BP

PATIENT
  Age: 85 Year
  Sex: Male

DRUGS (3)
  1. AGGRENOX [Suspect]
     Dosage: 50MG ASPIRIN/400MG EXTENDED-RELEASE DIPYRIDAMOLE
     Route: 048
     Dates: start: 20080116, end: 20080201
  2. AVAPRO [Concomitant]
  3. TOPROL-XL [Concomitant]
     Indication: BLOOD PRESSURE INCREASED

REACTIONS (3)
  - ASTHENIA [None]
  - DISORIENTATION [None]
  - GAIT DISTURBANCE [None]
